FAERS Safety Report 10532289 (Version 3)
Quarter: 2015Q2

REPORT INFORMATION
  Report Type: Spontaneous
  Country: US (occurrence: US)
  Receive Date: 20141021
  Receipt Date: 20150424
  Transmission Date: 20150821
  Serious: No
  Sender: FDA-Public Use
  Company Number: US-MYLANLABS-2014SP005056

PATIENT

DRUGS (1)
  1. METHOTREXATE [Suspect]
     Active Substance: METHOTREXATE

REACTIONS (4)
  - Unevaluable event [Not Recovered/Not Resolved]
  - Hangover [Not Recovered/Not Resolved]
  - Condition aggravated [Unknown]
  - Vertigo [Not Recovered/Not Resolved]
